FAERS Safety Report 9783448 (Version 2)
Quarter: 2014Q1

REPORT INFORMATION
  Report Type: Spontaneous
  Country: BR (occurrence: BR)
  Receive Date: 20131226
  Receipt Date: 20140130
  Transmission Date: 20141002
  Serious: Yes (Other)
  Sender: FDA-Public Use
  Company Number: BR-PFIZER INC-2013365655

PATIENT
  Age: 84 Year
  Sex: Male

DRUGS (3)
  1. XALATAN [Suspect]
     Indication: OPEN ANGLE GLAUCOMA
     Dosage: UNK
  2. AZOPT [Concomitant]
     Indication: OPEN ANGLE GLAUCOMA
     Dosage: UNK
  3. TIMOLOL [Concomitant]
     Indication: OPEN ANGLE GLAUCOMA
     Dosage: UNK

REACTIONS (3)
  - Femur fracture [Unknown]
  - Fall [Unknown]
  - Visual field defect [Unknown]
